FAERS Safety Report 16465002 (Version 1)
Quarter: 2019Q2

REPORT INFORMATION
  Report Type: Report from Study
  Country: RU (occurrence: RU)
  Receive Date: 20190621
  Receipt Date: 20190621
  Transmission Date: 20190711
  Serious: Yes (Hospitalization)
  Sender: FDA-Public Use
  Company Number: RU-ALEXION PHARMACEUTICALS INC-A201908360

PATIENT
  Age: 11 Year
  Sex: Male
  Weight: 27 kg

DRUGS (1)
  1. ASFOTASE ALFA [Suspect]
     Active Substance: ASFOTASE ALFA
     Indication: HYPOPHOSPHATASIA
     Dosage: 2 MG/KG, TIW
     Route: 065
     Dates: start: 2017

REACTIONS (2)
  - Blood alkaline phosphatase increased [Unknown]
  - Urine phosphorus increased [Unknown]

NARRATIVE: CASE EVENT DATE: 20190130
